FAERS Safety Report 7810296-1 (Version None)
Quarter: 2011Q4

REPORT INFORMATION
  Report Type: 
  Country: None (occurrence: None)
  Receive Date: 20111012
  Receipt Date: 20110927
  Transmission Date: 20120403
  Serious: Yes (Other)
  Sender: FDA-Public Use
  Company Number: CA-ROCHE-697700

PATIENT
  Sex: Female
  Weight: 58.566 kg

DRUGS (14)
  1. FLUDARABINE PHOSPHATE [Suspect]
     Indication: PRODUCT USED FOR UNKNOWN INDICATION
     Dosage: START DATE: 2010
     Route: 065
  2. VALACYCLOVIR [Concomitant]
  3. DOLASETRON MESYLATE [Concomitant]
  4. PROCHLORPERAZINE [Concomitant]
  5. VITAMIN D [Concomitant]
  6. ASCORBIC ACID [Concomitant]
  7. MABTHERA [Suspect]
  8. SULFAMETHOXAZOLE [Concomitant]
  9. DEXAMETHASONE [Concomitant]
     Indication: PREMEDICATION
     Dosage: FREQUENCY: ONCE
     Dates: start: 20100317, end: 20100317
  10. TYLENOL COLD PRODUCT NOS [Concomitant]
     Indication: PREMEDICATION
     Dosage: DOSE: TWO DOSES. FREQUENCY: ONCE
     Dates: start: 20100317, end: 20100317
  11. BENADRYL HCL [Suspect]
     Indication: PREMEDICATION
     Route: 065
     Dates: start: 20100218, end: 20100218
  12. BENADRYL HCL [Suspect]
     Route: 065
  13. BENADRYL HCL [Suspect]
     Route: 065
     Dates: start: 20100317, end: 20100317
  14. MABTHERA [Suspect]
     Indication: NON-HODGKIN'S LYMPHOMA
     Dosage: FORM: INFUSION
     Route: 042

REACTIONS (16)
  - NEUROPATHY PERIPHERAL [None]
  - TINNITUS [None]
  - NAUSEA [None]
  - TREMOR [None]
  - CHEST PAIN [None]
  - FLUSHING [None]
  - BLOOD PRESSURE DECREASED [None]
  - MUSCLE TWITCHING [None]
  - SYNCOPE [None]
  - VOMITING [None]
  - CHILLS [None]
  - OXYGEN SATURATION DECREASED [None]
  - HEART RATE IRREGULAR [None]
  - DIZZINESS [None]
  - HEART RATE DECREASED [None]
  - PALPITATIONS [None]
